FAERS Safety Report 4553565-3 (Version None)
Quarter: 2004Q4

REPORT INFORMATION
  Report Type: 
  Country: None (occurrence: None)
  Receive Date: 20041227
  Receipt Date: 20040901
  Transmission Date: 20050328
  Serious: No
  Sender: FDA-Public Use
  Company Number: 04P-163-0272027-00

PATIENT
  Age: 75 Year
  Sex: Female
  Weight: 56.6996 kg

DRUGS (16)
  1. HUMIRA [Suspect]
     Indication: RHEUMATOID ARTHRITIS
     Dosage: 40 MG, 1 IN 2 WK, SUBCUTANEOUS
     Route: 058
     Dates: start: 20040728
  2. MULTI-VITAMINS [Concomitant]
  3. ASCORBIC ACID [Concomitant]
  4. TOCOPHEROL CONCENTRATE CAP [Concomitant]
  5. CALCIM WITH VITAMIN D [Concomitant]
  6. ALENDRONATE SODIUM [Concomitant]
  7. FOLIC ACID [Concomitant]
  8. ACETYLSALICYLIC ACID SRT [Concomitant]
  9. HYDROCHLOROTHIAZIDE [Concomitant]
  10. FISH OIL [Concomitant]
  11. QUINAPRIL HYDROCHLORIDE [Concomitant]
  12. PREDNISONE [Concomitant]
  13. METHOTREXATE [Concomitant]
  14. LEVOTHYROXINE SODIUM [Concomitant]
  15. ATORVASTATIN [Concomitant]
  16. LOTREL [Concomitant]

REACTIONS (4)
  - INJECTION SITE ERYTHEMA [None]
  - INJECTION SITE PAIN [None]
  - INJECTION SITE WARMTH [None]
  - RHEUMATOID ARTHRITIS [None]
